FAERS Safety Report 6276140-1 (Version None)
Quarter: 2009Q3

REPORT INFORMATION
  Report Type: 
  Country: None (occurrence: None)
  Receive Date: 20090720
  Receipt Date: 20090720
  Transmission Date: 20100115
  Serious: Yes (Other)
  Sender: FDA-Public Use
  Company Number: None

PATIENT
  Age: 80 Year
  Sex: Male

DRUGS (3)
  1. TRILEPTAL [Suspect]
     Indication: COMPLEX PARTIAL SEIZURES
     Dosage: 150MG OR 300MG BID PO
     Route: 048
  2. DEPAKOTE [Suspect]
     Dosage: 250 MG TID PO
     Route: 048
  3. ZONEGRAN [Suspect]
     Dosage: PO
     Route: 048

REACTIONS (7)
  - COORDINATION ABNORMAL [None]
  - DIZZINESS [None]
  - DYSPNOEA [None]
  - HEADACHE [None]
  - NAUSEA [None]
  - NERVOUSNESS [None]
  - VISION BLURRED [None]
